FAERS Safety Report 20060310 (Version 1)
Quarter: 2021Q4

REPORT INFORMATION
  Report Type: Other
  Country: CN (occurrence: None)
  Receive Date: 20211112
  Receipt Date: 20211112
  Transmission Date: 20220303
  Serious: Yes (Other)
  Sender: FDA-Public Use
  Company Number: CN-ROCHE-2950575

PATIENT

DRUGS (2)
  1. BEVACIZUMAB [Suspect]
     Active Substance: BEVACIZUMAB
     Indication: Non-small cell lung cancer
     Route: 041
  2. ENDOSTATIN [Suspect]
     Active Substance: ENDOSTATIN
     Indication: Non-small cell lung cancer
     Route: 041

REACTIONS (5)
  - Leukopenia [Unknown]
  - Gastrointestinal disorder [Unknown]
  - Pyrexia [Unknown]
  - Thrombocytopenia [Unknown]
  - Rash [Unknown]
